FAERS Safety Report 9584692 (Version 1)
Quarter: 2013Q4

REPORT INFORMATION
  Report Type: Spontaneous
  Country: US (occurrence: US)
  Receive Date: 20131002
  Receipt Date: 20131002
  Transmission Date: 20140711
  Serious: No
  Sender: FDA-Public Use
  Company Number: US-AMGEN-USASP2013055254

PATIENT
  Age: 50 Year
  Sex: Female
  Weight: 54.42 kg

DRUGS (6)
  1. ENBREL [Suspect]
     Indication: PRODUCT USED FOR UNKNOWN INDICATION
     Dosage: 50 MG, QWK
     Route: 058
  2. IBUPROFEN                          /00109205/ [Concomitant]
     Dosage: 200 MG, UNK
  3. VITAMIN C                          /00008001/ [Concomitant]
     Dosage: 500 MG, UNK
  4. FISH OIL [Concomitant]
     Dosage: UNK
  5. CALCIUM PLUS VITAMIN D [Concomitant]
     Dosage: UNK
  6. FOLIC ACID [Concomitant]
     Dosage: UNK

REACTIONS (1)
  - Weight increased [Unknown]
